FAERS Safety Report 23096356 (Version 1)
Quarter: 2023Q4

REPORT INFORMATION
  Report Type: Spontaneous
  Country: US (occurrence: None)
  Receive Date: 20231023
  Receipt Date: 20231023
  Transmission Date: 20240110
  Serious: No
  Sender: FDA-Public Use
  Company Number: 2023A235627

PATIENT
  Sex: Female
  Weight: 104.3 kg

DRUGS (3)
  1. TEZSPIRE [Suspect]
     Active Substance: TEZEPELUMAB-EKKO
  2. DUPIXENT [Suspect]
     Active Substance: DUPILUMAB
     Indication: Asthma
     Dosage: 300MG/2 ML,, EVERY OTHER WEEK
     Route: 058
  3. DUPIXENT [Suspect]
     Active Substance: DUPILUMAB
     Indication: Asthma
     Dosage: 300MG/2 ML. EVERY OTHER WEEK
     Route: 058

REACTIONS (4)
  - Drug hypersensitivity [Unknown]
  - Herpes zoster [Unknown]
  - Arthropathy [Unknown]
  - Limb discomfort [Unknown]
